FAERS Safety Report 7739562-5 (Version None)
Quarter: 2011Q3

REPORT INFORMATION
  Report Type: 
  Country: None (occurrence: None)
  Receive Date: 20110909
  Receipt Date: 20110907
  Transmission Date: 20111222
  Serious: Yes (Other)
  Sender: FDA-Public Use
  Company Number: JP-PFIZER INC-2011208879

PATIENT
  Age: 68 Year

DRUGS (2)
  1. LYRICA [Suspect]
     Indication: NEURALGIA
     Dosage: 150 MG/DAY
     Route: 048
     Dates: start: 20110802, end: 20110812
  2. CELECOXIB [Suspect]
     Indication: PAIN
     Dosage: 200 MG/DAY
     Route: 048
     Dates: start: 20110802, end: 20110812

REACTIONS (4)
  - DYSPNOEA [None]
  - DRUG INEFFECTIVE [None]
  - FAECES DISCOLOURED [None]
  - GASTROINTESTINAL ULCER [None]
